FAERS Safety Report 11792921 (Version 1)
Quarter: 2015Q4

REPORT INFORMATION
  Report Type: Spontaneous
  Country: US (occurrence: None)
  Receive Date: 20151130
  Receipt Date: 20151130
  Transmission Date: 20160305
  Serious: Yes (Hospitalization)
  Sender: FDA-Public Use
  Company Number: 2015US-106637

PATIENT
  Age: 69 Year
  Sex: Female

DRUGS (1)
  1. BACLOFEN (BACLOFEN) UNKNOWN [Suspect]
     Active Substance: BACLOFEN
     Indication: MUSCLE SPASTICITY
     Route: 048

REACTIONS (3)
  - Drug withdrawal syndrome [None]
  - Chronic obstructive pulmonary disease [None]
  - Rhabdomyolysis [None]
